FAERS Safety Report 6709238-1 (Version None)
Quarter: 2010Q2

REPORT INFORMATION
  Report Type: 
  Country: None (occurrence: None)
  Receive Date: 20100503
  Receipt Date: 20100503
  Transmission Date: 20101027
  Serious: Yes (Disabling, Other)
  Sender: FDA-Public Use
  Company Number: None

PATIENT
  Age: 73 Year
  Sex: Female
  Weight: 77.1115 kg

DRUGS (2)
  1. CYMBALTA [Suspect]
     Indication: DEPRESSION
     Dosage: 60 MG 1 A DAY MOUTH
     Route: 048
  2. CYMBALTA [Suspect]
     Indication: PAIN
     Dosage: 60 MG 1 A DAY MOUTH
     Route: 048

REACTIONS (1)
  - TOOTH LOSS [None]
